FAERS Safety Report 19483198 (Version 1)
Quarter: 2021Q3

REPORT INFORMATION
  Report Type: Spontaneous
  Country: US (occurrence: US)
  Receive Date: 20210701
  Receipt Date: 20210701
  Transmission Date: 20211014
  Serious: No
  Sender: FDA-Public Use
  Company Number: US-SA-2021SA215889

PATIENT
  Age: 84 Year
  Sex: Female

DRUGS (4)
  1. DUPIXENT [Suspect]
     Active Substance: DUPILUMAB
     Indication: DERMATITIS ATOPIC
     Dosage: 300 UNK, QOW
     Dates: start: 20210204
  2. LISINOPRIL. [Concomitant]
     Active Substance: LISINOPRIL
     Dosage: 81MG
  3. LISINOPRIL. [Concomitant]
     Active Substance: LISINOPRIL
  4. ASPIRIN [ACETYLSALICYLIC ACID] [Concomitant]
     Active Substance: ASPIRIN

REACTIONS (3)
  - Burning sensation [Unknown]
  - Pruritus [Unknown]
  - Condition aggravated [Unknown]

NARRATIVE: CASE EVENT DATE: 202106
